FAERS Safety Report 15905767 (Version 6)
Quarter: 2019Q2

REPORT INFORMATION
  Report Type: Report from Study
  Country: FR (occurrence: FR)
  Receive Date: 20190204
  Receipt Date: 20190402
  Transmission Date: 20190711
  Serious: Yes (Hospitalization)
  Sender: FDA-Public Use
  Company Number: FR-BAYER-2019-020235

PATIENT
  Age: 35 Year
  Sex: Male

DRUGS (1)
  1. KOVALTRY [Suspect]
     Active Substance: ANTIHEMOPHILIC FACTOR, HUMAN RECOMBINANT
     Indication: FACTOR VIII DEFICIENCY
     Dosage: 3000 IU, QD
     Route: 042

REACTIONS (7)
  - Diabetic metabolic decompensation [None]
  - Pain [Recovering/Resolving]
  - Hyperglycaemia [None]
  - Chest discomfort [Recovering/Resolving]
  - Affective disorder [None]
  - General physical condition decreased [None]
  - Diabetic ketosis [None]

NARRATIVE: CASE EVENT DATE: 201812
